FAERS Safety Report 15008742 (Version 3)
Quarter: 2018Q4

REPORT INFORMATION
  Report Type: Spontaneous
  Country: US (occurrence: US)
  Receive Date: 20180613
  Receipt Date: 20181218
  Transmission Date: 20190204
  Serious: Yes (Disabling, Other)
  Sender: FDA-Public Use
  Company Number: US-OTSUKA-2018_015522

PATIENT
  Sex: Male

DRUGS (5)
  1. ABILIFY [Suspect]
     Active Substance: ARIPIPRAZOLE
     Indication: BIPOLAR DISORDER
     Dosage: 10 MG, QD
     Route: 065
     Dates: start: 2010, end: 2017
  2. MIRAPEX [Concomitant]
     Active Substance: PRAMIPEXOLE DIHYDROCHLORIDE
     Indication: RESTLESS LEGS SYNDROME
  3. PRAMIPEXOLE. [Concomitant]
     Active Substance: PRAMIPEXOLE
     Indication: RESTLESS LEGS SYNDROME
  4. MIRAPEX [Concomitant]
     Active Substance: PRAMIPEXOLE DIHYDROCHLORIDE
     Indication: PARKINSON^S DISEASE
     Dosage: UNK
     Route: 065
     Dates: start: 20070410, end: 201107
  5. PRAMIPEXOLE. [Concomitant]
     Active Substance: PRAMIPEXOLE
     Indication: PARKINSON^S DISEASE
     Dosage: UNK
     Route: 065
     Dates: start: 20120228, end: 201209

REACTIONS (18)
  - Gastrointestinal surgery [Unknown]
  - Anxiety [Unknown]
  - Disability [Unknown]
  - Compulsive hoarding [Recovered/Resolved]
  - Compulsive shopping [Recovered/Resolved]
  - Gambling disorder [Recovered/Resolved]
  - Condition aggravated [Unknown]
  - Emotional distress [Unknown]
  - Shoplifting [Unknown]
  - Anhedonia [Unknown]
  - Condition aggravated [Recovered/Resolved]
  - Pain [Unknown]
  - Economic problem [Unknown]
  - Injury [Unknown]
  - Weight increased [Unknown]
  - Eating disorder [Recovered/Resolved]
  - Theft [Unknown]
  - Bankruptcy [Unknown]

NARRATIVE: CASE EVENT DATE: 201010
